FAERS Safety Report 23485505 (Version 1)
Quarter: 2024Q1

REPORT INFORMATION
  Report Type: Spontaneous
  Country: US (occurrence: US)
  Receive Date: 20240206
  Receipt Date: 20240206
  Transmission Date: 20240409
  Serious: No
  Sender: FDA-Public Use
  Company Number: US-SA-SAC20240131001413

PATIENT
  Sex: Male
  Weight: 102 kg

DRUGS (10)
  1. DUPIXENT [Suspect]
     Active Substance: DUPILUMAB
     Indication: Dermatitis atopic
     Dosage: 300 MG, QOW
     Route: 058
     Dates: start: 202008
  2. SYNTHROID [Concomitant]
     Active Substance: LEVOTHYROXINE SODIUM
  3. ROSUVASTATIN [Concomitant]
     Active Substance: ROSUVASTATIN
  4. OLMESARTAN [Concomitant]
     Active Substance: OLMESARTAN
  5. PITAVASTATIN [Concomitant]
     Active Substance: PITAVASTATIN
  6. TRAMADOL [Concomitant]
     Active Substance: TRAMADOL\TRAMADOL HYDROCHLORIDE
  7. OXYCODONE [Concomitant]
     Active Substance: OXYCODONE\OXYCODONE HYDROCHLORIDE
  8. GABAPENTIN [Concomitant]
     Active Substance: GABAPENTIN
  9. MELOXICAM [Concomitant]
     Active Substance: MELOXICAM
  10. TAMSULOSIN [Concomitant]
     Active Substance: TAMSULOSIN

REACTIONS (1)
  - Arthropathy [Unknown]
